FAERS Safety Report 13662741 (Version 1)
Quarter: 2017Q2

REPORT INFORMATION
  Report Type: Spontaneous
  Country: US (occurrence: US)
  Receive Date: 20170616
  Receipt Date: 20170616
  Transmission Date: 20170830
  Serious: No
  Sender: FDA-Public Use
  Company Number: None

PATIENT
  Age: 70 Year
  Sex: Male
  Weight: 136.99 kg

DRUGS (1)
  1. DALBAVANCIN, 500MG DURATA THERAPEUTICS [Suspect]
     Active Substance: DALBAVANCIN
     Indication: CELLULITIS
     Dosage: 1000MG 2 DOSES Q7DAYS INTRAVENOUS DRIP
     Route: 041
     Dates: start: 20170614, end: 20170614

REACTIONS (4)
  - Back pain [None]
  - Infusion related reaction [None]
  - Pain in extremity [None]
  - Arthralgia [None]

NARRATIVE: CASE EVENT DATE: 20170614
